FAERS Safety Report 6883416-3 (Version None)
Quarter: 2010Q3

REPORT INFORMATION
  Report Type: 
  Country: None (occurrence: None)
  Receive Date: 20100729
  Receipt Date: 20100722
  Transmission Date: 20110219
  Serious: Yes (Hospitalization, Other)
  Sender: FDA-Public Use
  Company Number: US-SANOFI-AVENTIS-2010SA030247

PATIENT
  Age: 68 Year
  Sex: Female
  Weight: 85.72 kg

DRUGS (4)
  1. LANTUS [Suspect]
     Indication: ASTHMA
     Dosage: DOSE:14 UNIT(S)
     Route: 058
  2. LANTUS [Suspect]
     Dosage: DOSE:14 UNIT(S)
     Route: 058
  3. LANTUS [Suspect]
     Dosage: DOSE:14 UNIT(S)
     Route: 058
  4. OPTICLICK [Suspect]

REACTIONS (2)
  - HOSPITALISATION [None]
  - NON-HODGKIN'S LYMPHOMA [None]
